FAERS Safety Report 10503996 (Version 1)
Quarter: 2014Q4

REPORT INFORMATION
  Report Type: Spontaneous
  Country: US (occurrence: None)
  Receive Date: 20141007
  Receipt Date: 20141007
  Transmission Date: 20150528
  Serious: Yes (Life-Threatening, Hospitalization)
  Sender: FDA-Public Use
  Company Number: None

PATIENT
  Age: 59 Year
  Sex: Male
  Weight: 74.39 kg

DRUGS (1)
  1. ATORVASTATIN [Suspect]
     Active Substance: ATORVASTATIN
     Indication: CARDIOMYOPATHY
     Route: 048
     Dates: start: 20140508, end: 20141006

REACTIONS (5)
  - Abdominal pain [None]
  - Diverticulitis [None]
  - Respiratory distress [None]
  - Large intestine perforation [None]
  - Cardiac disorder [None]

NARRATIVE: CASE EVENT DATE: 20140905
